FAERS Safety Report 23516921 (Version 1)
Quarter: 2024Q1

REPORT INFORMATION
  Report Type: Spontaneous
  Country: US (occurrence: US)
  Receive Date: 20240213
  Receipt Date: 20240213
  Transmission Date: 20240410
  Serious: No
  Sender: FDA-Public Use
  Company Number: US-ABBVIE-5632902

PATIENT
  Sex: Female

DRUGS (1)
  1. LATISSE [Suspect]
     Active Substance: BIMATOPROST
     Indication: Product used for unknown indication
     Dosage: SIZE OF LATISSE 3 ML?FREQUENCY TEXT: 1 DROP PER APPLICATOR AND 1 APPLICATOR PER EYE?FORM STRENGTH...
     Route: 047

REACTIONS (1)
  - Eye pruritus [Unknown]
